FAERS Safety Report 26001211 (Version 1)
Quarter: 2025Q4

REPORT INFORMATION
  Report Type: Spontaneous
  Country: EU (occurrence: EU)
  Receive Date: 20251105
  Receipt Date: 20251105
  Transmission Date: 20260118
  Serious: Yes (Other)
  Sender: PFIZER
  Company Number: None

PATIENT
  Age: 31 Year
  Sex: Female
  Weight: 78 kg

DRUGS (1)
  1. TAVOR (LORAZEPAM) [Suspect]
     Active Substance: LORAZEPAM
     Dosage: 1 MG
     Route: 048
     Dates: start: 20200114, end: 20200116

REACTIONS (12)
  - Syncope [Recovered/Resolved]
  - Paralysis [Unknown]
  - Dizziness [Unknown]
  - Muscular weakness [Unknown]
  - Strabismus [Unknown]
  - Dyspnoea [Unknown]
  - Abnormal dreams [Unknown]
  - Anxiety [Unknown]
  - Palpitations [Unknown]
  - Nausea [Unknown]
  - Hyperhidrosis [Unknown]
  - Vomiting [Unknown]

NARRATIVE: CASE EVENT DATE: 20200115
